FAERS Safety Report 17943809 (Version 1)
Quarter: 2020Q2

REPORT INFORMATION
  Report Type: Spontaneous
  Country: GB (occurrence: GB)
  Receive Date: 20200625
  Receipt Date: 20200625
  Transmission Date: 20200714
  Serious: Yes (Hospitalization, Other)
  Sender: FDA-Public Use
  Company Number: NVSC2020GB179075

PATIENT
  Age: 10 Year
  Sex: Female
  Weight: 64 kg

DRUGS (2)
  1. GABAPENTIN. [Concomitant]
     Active Substance: GABAPENTIN
     Indication: PRODUCT USED FOR UNKNOWN INDICATION
     Route: 065
  2. DABRAFENIB [Suspect]
     Active Substance: DABRAFENIB
     Indication: GANGLIOGLIOMA
     Dosage: 225 MG (75MG MORNING, 150MG EVENING), QD
     Route: 048
     Dates: start: 20190227

REACTIONS (6)
  - Polyuria [Unknown]
  - Polydipsia [Unknown]
  - Liver function test abnormal [Unknown]
  - Hepatic steatosis [Unknown]
  - Type 2 diabetes mellitus [Unknown]
  - Hyperglycaemia [Recovered/Resolved]

NARRATIVE: CASE EVENT DATE: 20200325
